FAERS Safety Report 7071302-8 (Version None)
Quarter: 2010Q4

REPORT INFORMATION
  Report Type: 
  Country: None (occurrence: None)
  Receive Date: 20101029
  Receipt Date: 20101026
  Transmission Date: 20110411
  Serious: Yes (Hospitalization)
  Sender: FDA-Public Use
  Company Number: NLWYE632917MAY06

PATIENT

DRUGS (1)
  1. EFFEXOR XR [Suspect]
     Indication: DEPRESSION
     Dates: start: 20050501, end: 20060101

REACTIONS (1)
  - GASTROINTESTINAL MOTILITY DISORDER [None]
